FAERS Safety Report 4301482-6 (Version None)
Quarter: 2004Q1

REPORT INFORMATION
  Report Type: 
  Country: None (occurrence: None)
  Receive Date: 20040218
  Receipt Date: 20040203
  Transmission Date: 20041129
  Serious: Yes (Hospitalization)
  Sender: FDA-Public Use
  Company Number: 2002US005502

PATIENT
  Age: 37 Year
  Sex: Male

DRUGS (9)
  1. AMBISOME [Suspect]
     Indication: OESOPHAGEAL CANDIDIASIS
     Dosage: SEE IMAGE
     Route: 042
     Dates: start: 20020515, end: 20020520
  2. AMBISOME [Suspect]
     Indication: OESOPHAGEAL CANDIDIASIS
     Dosage: SEE IMAGE
     Route: 042
     Dates: end: 20020611
  3. TENOFOVIR (TENOFOVIR) [Suspect]
     Indication: HIV INFECTION
     Dosage: 300 MG, UID/QD, ORAL
     Route: 048
     Dates: start: 20020208, end: 20020517
  4. SEPTRA [Concomitant]
     Dates: end: 20020520
  5. DIDANOSINE (DIDANOSINE) [Concomitant]
  6. ABACAVIR (ABACAVIR) [Concomitant]
  7. CIPROFLOXACIN [Concomitant]
  8. CLARITHROMYCIN [Concomitant]
  9. GANCICLOVIR SODIUM [Concomitant]

REACTIONS (8)
  - DRUG INTERACTION [None]
  - HEPATITIS CHOLESTATIC [None]
  - LACTIC ACIDOSIS [None]
  - METABOLIC ACIDOSIS [None]
  - NAUSEA [None]
  - OESOPHAGEAL CANDIDIASIS [None]
  - RENAL TUBULAR ACIDOSIS [None]
  - VOMITING [None]
